FAERS Safety Report 14439471 (Version 1)
Quarter: 2018Q1

REPORT INFORMATION
  Report Type: Spontaneous
  Country: GB (occurrence: GB)
  Receive Date: 20180125
  Receipt Date: 20180125
  Transmission Date: 20180509
  Serious: Yes (Other)
  Sender: FDA-Public Use
  Company Number: GB-009507513-1801GBR007765

PATIENT
  Age: 22 Year
  Sex: Male
  Weight: 76.2 kg

DRUGS (4)
  1. MEDIKINET [Concomitant]
     Active Substance: METHYLPHENIDATE
     Dosage: 10 MG, QD
     Dates: start: 20171116, end: 20171128
  2. PROPRANOLOL [Concomitant]
     Active Substance: PROPRANOLOL HYDROCHLORIDE
     Dosage: 40 MG (THREE TIMES A DAY, AS NECESSARY)
     Dates: start: 20171205
  3. MIRTAZAPINE. [Suspect]
     Active Substance: MIRTAZAPINE
     Dosage: 15 MG, QD (NIGHT)
     Route: 048
  4. MIRTAZAPINE. [Suspect]
     Active Substance: MIRTAZAPINE
     Dosage: 15MG/ML, SUGAR FREE
     Route: 048

REACTIONS (1)
  - Depression suicidal [Recovering/Resolving]

NARRATIVE: CASE EVENT DATE: 20171128
